FAERS Safety Report 12132674 (Version 1)
Quarter: 2016Q1

REPORT INFORMATION
  Report Type: Spontaneous
  Country: US (occurrence: US)
  Receive Date: 20160301
  Receipt Date: 20160301
  Transmission Date: 20160526
  Serious: No
  Sender: FDA-Public Use
  Company Number: US-JNJFOC-20160203239

PATIENT
  Sex: Male
  Weight: 113.4 kg

DRUGS (3)
  1. XARELTO [Suspect]
     Active Substance: RIVAROXABAN
     Indication: THROMBOSIS
     Route: 048
  2. LEVOTHYROXINE. [Concomitant]
     Active Substance: LEVOTHYROXINE
     Indication: HYPOTHYROIDISM
     Route: 048
  3. XARELTO [Suspect]
     Active Substance: RIVAROXABAN
     Indication: THROMBOSIS
     Route: 048
     Dates: start: 201512

REACTIONS (6)
  - Decreased appetite [Unknown]
  - Arthralgia [Not Recovered/Not Resolved]
  - Decreased activity [Not Recovered/Not Resolved]
  - Wrong technique in product usage process [Unknown]
  - Skin exfoliation [Not Recovered/Not Resolved]
  - Abdominal discomfort [Unknown]
